FAERS Safety Report 4543302-0 (Version None)
Quarter: 2004Q4

REPORT INFORMATION
  Report Type: 
  Country: None (occurrence: None)
  Receive Date: 20041229
  Receipt Date: 20041214
  Transmission Date: 20050328
  Serious: Yes (Death)
  Sender: FDA-Public Use
  Company Number: 2004VX000958

PATIENT
  Age: 69 Year
  Sex: Male

DRUGS (1)
  1. TASMAR [Suspect]
     Indication: PARKINSON'S DISEASE
     Dosage: 100 MG; 3 TIMES A DAY; ORAL
     Route: 048
     Dates: start: 20020103, end: 20041212

REACTIONS (2)
  - HAEMOPTYSIS [None]
  - PULMONARY EMBOLISM [None]
